FAERS Safety Report 7334647-X (Version None)
Quarter: 2011Q1

REPORT INFORMATION
  Report Type: 
  Country: None (occurrence: None)
  Receive Date: 20110307
  Receipt Date: 20110301
  Transmission Date: 20110831
  Serious: Yes (Other)
  Sender: FDA-Public Use
  Company Number: US-PFIZER INC-2011044833

PATIENT
  Sex: Female

DRUGS (1)
  1. DILANTIN-125 [Suspect]
     Dosage: UNK

REACTIONS (4)
  - STATUS EPILEPTICUS [None]
  - DRUG INEFFECTIVE [None]
  - DEPRESSED MOOD [None]
  - IMPAIRED DRIVING ABILITY [None]
